FAERS Safety Report 5671126-X (Version None)
Quarter: 2008Q1

REPORT INFORMATION
  Report Type: 
  Country: None (occurrence: None)
  Receive Date: 20080313
  Receipt Date: 20080224
  Transmission Date: 20080703
  Serious: Yes (Hospitalization)
  Sender: FDA-Public Use
  Company Number: ENT 2008-0025

PATIENT
  Age: 77 Year
  Sex: Male
  Weight: 95 kg

DRUGS (5)
  1. ENTACAPONE [Suspect]
     Indication: PARKINSON'S DISEASE
     Dosage: 200 MG QID
  2. CARBIDOPA + LEVODOPA [Suspect]
     Indication: PARKINSON'S DISEASE
     Dosage: 25/100MG, 1,5 DF X4, ORAL; 25/250MG X 4, ORAL
     Route: 048
  3. PRAMIPEXOLE DIHYDROCHLORIDE [Suspect]
     Indication: PARKINSON'S DISEASE
     Dosage: 1,5 MG TID
  4. PROSOURCE [Suspect]
     Indication: PARKINSON'S DISEASE
  5. NUTREN [Suspect]

REACTIONS (4)
  - BASAL GANGLIA HAEMORRHAGE [None]
  - DRUG INTERACTION [None]
  - MUSCLE RIGIDITY [None]
  - VISUAL FIELD DEFECT [None]
